FAERS Safety Report 9663726 (Version 16)
Quarter: 2017Q2

REPORT INFORMATION
  Report Type: Report from Study
  Country: CA (occurrence: CA)
  Receive Date: 20131101
  Receipt Date: 20170421
  Transmission Date: 20170830
  Serious: Yes (Hospitalization, Other)
  Sender: FDA-Public Use
  Company Number: PHHY2013CA123104

PATIENT
  Age: 69 Year
  Sex: Female

DRUGS (2)
  1. SANDOSTATIN [Suspect]
     Active Substance: OCTREOTIDE ACETATE
     Indication: NEUROENDOCRINE TUMOUR
     Dosage: 200 UG, TID, FOR 7 DOSES
     Route: 058
     Dates: start: 20131020, end: 2013
  2. SANDOSTATIN LAR DEPOT [Suspect]
     Active Substance: OCTREOTIDE ACETATE
     Indication: NEUROENDOCRINE TUMOUR
     Dosage: 30 MG, QMO (ONCE A MONTH)
     Route: 030
     Dates: start: 20131028

REACTIONS (20)
  - Metastases to thyroid [Recovering/Resolving]
  - Lung disorder [Unknown]
  - Diarrhoea [Recovered/Resolved]
  - Nausea [Unknown]
  - Blood pressure systolic increased [Unknown]
  - Heart rate increased [Unknown]
  - Body temperature decreased [Unknown]
  - Vertigo [Unknown]
  - Arthralgia [Unknown]
  - Mass [Unknown]
  - Metastases to liver [Recovering/Resolving]
  - Pain in extremity [Unknown]
  - Diarrhoea [Recovered/Resolved]
  - Abdominal pain lower [Unknown]
  - Abdominal abscess [Unknown]
  - Loss of consciousness [Unknown]
  - Malignant neoplasm progression [Unknown]
  - Diarrhoea [Unknown]
  - Dizziness [Unknown]
  - Blood pressure diastolic decreased [Unknown]

NARRATIVE: CASE EVENT DATE: 2013
